FAERS Safety Report 4312104-2 (Version None)
Quarter: 2004Q1

REPORT INFORMATION
  Report Type: 
  Country: None (occurrence: None)
  Receive Date: 20040304
  Receipt Date: 20040304
  Transmission Date: 20041129
  Serious: Yes (Other)
  Sender: FDA-Public Use
  Company Number: None

PATIENT
  Sex: Male

DRUGS (2)
  1. TRAMADOL HCL [Suspect]
     Dosage: 100MG QID
     Dates: start: 20030601
  2. VENLAFAXINE HCL [Suspect]
     Dosage: 75 MG PRN

REACTIONS (1)
  - CONVULSION [None]
